FAERS Safety Report 6448326-4 (Version None)
Quarter: 2009Q4

REPORT INFORMATION
  Report Type: 
  Country: None (occurrence: None)
  Receive Date: 20091120
  Receipt Date: 20091112
  Transmission Date: 20100525
  Serious: Yes (Other)
  Sender: FDA-Public Use
  Company Number: PHHY2009JP06908

PATIENT
  Sex: Male
  Weight: 64 kg

DRUGS (12)
  1. GLEEVEC [Suspect]
     Indication: CHRONIC MYELOID LEUKAEMIA
     Dosage: 400 MG DAILY
     Route: 048
     Dates: start: 20071026, end: 20080327
  2. GLEEVEC [Suspect]
     Dosage: 200 MG DAILY
     Route: 048
     Dates: start: 20080328, end: 20090410
  3. GLEEVEC [Suspect]
     Dosage: 200 MG DAILY
     Route: 048
     Dates: start: 20080530, end: 20080703
  4. GLEEVEC [Suspect]
     Dosage: 300 MG DAILY
     Route: 048
     Dates: start: 20080704, end: 20081030
  5. GLEEVEC [Suspect]
     Dosage: 400 MG DAILY
     Dates: start: 20081031
  6. PREDONINE [Suspect]
     Indication: STOMATITIS
     Dosage: 10 MG DAILY
     Route: 048
     Dates: start: 20080516, end: 20080529
  7. PREDONINE [Suspect]
     Dosage: 20 MG DAILY
     Route: 048
     Dates: start: 20080530, end: 20080828
  8. PREDONINE [Suspect]
     Dosage: 15 MG DAILY
     Route: 048
     Dates: start: 20080829, end: 20081211
  9. PREDONINE [Suspect]
     Dosage: 12.5 MG DAILY
     Route: 048
     Dates: start: 20081212, end: 20081225
  10. PREDONINE [Suspect]
     Dosage: 10 MG DAILY
     Route: 048
     Dates: start: 20081226, end: 20090226
  11. PREDONINE [Suspect]
     Dosage: 7.5 MG DAILY
     Route: 048
     Dates: start: 20090227, end: 20090326
  12. PREDONINE [Suspect]
     Dosage: 5 MG DAILY
     Route: 048
     Dates: start: 20090327

REACTIONS (9)
  - CONTINUOUS POSITIVE AIRWAY PRESSURE [None]
  - FACE OEDEMA [None]
  - LARYNGEAL OEDEMA [None]
  - MUSCLE SPASMS [None]
  - ORAL PAIN [None]
  - RASH [None]
  - SLEEP APNOEA SYNDROME [None]
  - SNORING [None]
  - STOMATITIS [None]
